FAERS Safety Report 5735740-5 (Version None)
Quarter: 2008Q2

REPORT INFORMATION
  Report Type: 
  Country: None (occurrence: None)
  Receive Date: 20080513
  Receipt Date: 20080506
  Transmission Date: 20081010
  Serious: Yes (Hospitalization, Other)
  Sender: FDA-Public Use
  Company Number: BR-BAYER-200811322LA

PATIENT
  Age: 29 Year
  Sex: Female
  Weight: 48 kg

DRUGS (2)
  1. MIRENA [Suspect]
     Indication: INTRA-UTERINE CONTRACEPTIVE DEVICE
     Route: 015
     Dates: start: 20030217, end: 20040301
  2. ESTREVA GEL [Concomitant]
     Indication: HORMONE REPLACEMENT THERAPY
     Route: 061

REACTIONS (5)
  - AMENORRHOEA [None]
  - OVARIAN CYST [None]
  - PRE-EXISTING CONDITION IMPROVED [None]
  - PROCEDURAL PAIN [None]
  - UTERINE LEIOMYOMA [None]
